FAERS Safety Report 6449509-X (Version None)
Quarter: 2009Q4

REPORT INFORMATION
  Report Type: 
  Country: None (occurrence: None)
  Receive Date: 20091120
  Receipt Date: 20090106
  Transmission Date: 20100525
  Serious: Yes (Hospitalization)
  Sender: FDA-Public Use
  Company Number: US-AMGEN-QUU326113

PATIENT
  Sex: Male
  Weight: 72.6 kg

DRUGS (3)
  1. ENBREL [Suspect]
     Indication: RHEUMATOID ARTHRITIS
     Route: 058
     Dates: start: 20030801, end: 20081002
  2. METHOTREXATE [Concomitant]
     Dates: start: 19970401
  3. FOLIC ACID [Concomitant]
     Dates: start: 19970401

REACTIONS (4)
  - ARTHRALGIA [None]
  - FALL [None]
  - GAIT DISTURBANCE [None]
  - LUNG NEOPLASM MALIGNANT [None]
